FAERS Safety Report 4491680-3 (Version None)
Quarter: 2004Q4

REPORT INFORMATION
  Report Type: 
  Country: None (occurrence: None)
  Receive Date: 20041029
  Receipt Date: 20041025
  Transmission Date: 20050328
  Serious: Yes (Death)
  Sender: FDA-Public Use
  Company Number: J081-231-3618

PATIENT
  Age: 84 Year
  Sex: Female
  Weight: 36.3 kg

DRUGS (6)
  1. DONEPEZIL HCL [Suspect]
     Indication: DEMENTIA ALZHEIMER'S TYPE
     Dosage: 3 MG, 1 IN 1, D, ORAL; 5 MG, 1 IN 1D, ORAL
     Route: 048
     Dates: start: 20040508, end: 20040501
  2. DONEPEZIL HCL [Suspect]
     Indication: DEMENTIA ALZHEIMER'S TYPE
     Dosage: 3 MG, 1 IN 1, D, ORAL; 5 MG, 1 IN 1D, ORAL
     Route: 048
     Dates: start: 20040501, end: 20041019
  3. FLUITRAN (TRICHLORMETHIAZIDE) [Suspect]
     Indication: DIURETIC THERAPY
     Dosage: 1 DOSAGE FORMS, 1 IN 1 D, ORAL
     Route: 048
     Dates: start: 20040802, end: 20041019
  4. CILOSTAZOL [Suspect]
     Indication: PERIPHERAL CIRCULATORY FAILURE
     Dosage: 2 DOSAGE FORMS, 2 IN 1 D, ORAL
     Route: 048
     Dates: end: 20041019
  5. PURSENNID (SENNA LEAF) [Concomitant]
  6. NOVOLIN R [Concomitant]

REACTIONS (3)
  - ACUTE MYOCARDIAL INFARCTION [None]
  - FALL [None]
  - VOMITING [None]
